FAERS Safety Report 9156950 (Version 1)
Quarter: 2013Q1

REPORT INFORMATION
  Report Type: Spontaneous
  Country: GB (occurrence: None)
  Receive Date: 20130206
  Receipt Date: 20130206
  Transmission Date: 20140127
  Serious: Yes (Life-Threatening, Hospitalization, Other)
  Sender: FDA-Public Use
  Company Number: GER/UKI/13/0027727

PATIENT
  Age: 30 Year
  Sex: Male

DRUGS (5)
  1. LAMOTRIGINE (LAMOTRIGINE) [Suspect]
     Indication: GASTRIC DISORDER
     Route: 048
  2. LANSOPRAZOLE (LANSOPRAZOLE) [Suspect]
     Indication: PEPTIC ULCER
     Route: 048
  3. CLOZARIL (CLOZAPINE) [Suspect]
     Indication: SCHIZOPHRENIA
     Route: 048
     Dates: start: 20010701
  4. HYOSCINE [Suspect]
     Indication: SALIVARY HYPERSECRETION
     Route: 048
  5. INSULIN (INSULIN) [Suspect]
     Indication: DIABETES MELLITUS
     Route: 058

REACTIONS (10)
  - Chest discomfort [None]
  - Pneumonia [None]
  - Sepsis [None]
  - Diarrhoea [None]
  - Diabetic ketoacidosis [None]
  - Type 1 diabetes mellitus [None]
  - Neutrophil count increased [None]
  - White blood cell count increased [None]
  - Hypophagia [None]
  - General physical health deterioration [None]
